FAERS Safety Report 7211243-6 (Version None)
Quarter: 2011Q1

REPORT INFORMATION
  Report Type: 
  Country: None (occurrence: None)
  Receive Date: 20110105
  Receipt Date: 20110103
  Transmission Date: 20110831
  Serious: Yes (Other)
  Sender: FDA-Public Use
  Company Number: IT-JNJFOC-20110100473

PATIENT
  Age: 54 Year
  Sex: Male

DRUGS (2)
  1. HALDOL [Suspect]
     Indication: PRODUCT USED FOR UNKNOWN INDICATION
     Route: 048
  2. TAVOR [Suspect]
     Indication: PRODUCT USED FOR UNKNOWN INDICATION
     Route: 048

REACTIONS (4)
  - SOPOR [None]
  - HYPOTENSION [None]
  - SLUGGISHNESS [None]
  - SELF INJURIOUS BEHAVIOUR [None]
